FAERS Safety Report 22594548 (Version 3)
Quarter: 2023Q2

REPORT INFORMATION
  Report Type: Report from Study
  Country: US (occurrence: US)
  Receive Date: 20230613
  Receipt Date: 20230623
  Transmission Date: 20230721
  Serious: No
  Sender: FDA-Public Use
  Company Number: US-002147023-NVSC2023US131248

PATIENT
  Sex: Male

DRUGS (25)
  1. TRIAMCINOLONE ACETONIDE [Suspect]
     Active Substance: TRIAMCINOLONE ACETONIDE
     Indication: Psoriasis
     Dosage: UNK
     Route: 065
  2. TRIAMCINOLONE ACETONIDE [Suspect]
     Active Substance: TRIAMCINOLONE ACETONIDE
     Indication: Psoriatic arthropathy
  3. TRIAMCINOLONE ACETONIDE [Suspect]
     Active Substance: TRIAMCINOLONE ACETONIDE
     Indication: Pustular psoriasis
  4. LOSARTAN [Suspect]
     Active Substance: LOSARTAN
     Indication: Psoriasis
     Dosage: UNK
     Route: 065
  5. LOSARTAN [Suspect]
     Active Substance: LOSARTAN
     Indication: Psoriatic arthropathy
  6. LOSARTAN [Suspect]
     Active Substance: LOSARTAN
     Indication: Pustular psoriasis
  7. COSENTYX [Suspect]
     Active Substance: SECUKINUMAB
     Indication: Product used for unknown indication
     Dosage: UNK
     Route: 065
  8. KETOCONAZOLE [Suspect]
     Active Substance: KETOCONAZOLE
     Indication: Psoriasis
     Dosage: UNK
     Route: 065
  9. KETOCONAZOLE [Suspect]
     Active Substance: KETOCONAZOLE
     Indication: Psoriatic arthropathy
  10. KETOCONAZOLE [Suspect]
     Active Substance: KETOCONAZOLE
     Indication: Pustular psoriasis
  11. ALBUTEROL SULFATE [Suspect]
     Active Substance: ALBUTEROL SULFATE
     Indication: Psoriasis
     Dosage: UNK
     Route: 065
  12. ALBUTEROL SULFATE [Suspect]
     Active Substance: ALBUTEROL SULFATE
     Indication: Psoriatic arthropathy
  13. ALBUTEROL SULFATE [Suspect]
     Active Substance: ALBUTEROL SULFATE
     Indication: Pustular psoriasis
  14. EPINEPHRINE [Suspect]
     Active Substance: EPINEPHRINE
     Indication: Psoriasis
     Dosage: UNK (AUTO-INJECTOR)
     Route: 065
  15. EPINEPHRINE [Suspect]
     Active Substance: EPINEPHRINE
     Indication: Psoriatic arthropathy
  16. EPINEPHRINE [Suspect]
     Active Substance: EPINEPHRINE
     Indication: Pustular psoriasis
  17. FOLIC ACID [Suspect]
     Active Substance: FOLIC ACID
     Indication: Psoriasis
     Dosage: UNK
     Route: 065
  18. FOLIC ACID [Suspect]
     Active Substance: FOLIC ACID
     Indication: Psoriatic arthropathy
  19. FOLIC ACID [Suspect]
     Active Substance: FOLIC ACID
     Indication: Pustular psoriasis
  20. IBUPROFEN [Suspect]
     Active Substance: IBUPROFEN
     Indication: Psoriasis
     Dosage: UNK
     Route: 065
  21. IBUPROFEN [Suspect]
     Active Substance: IBUPROFEN
     Indication: Psoriatic arthropathy
  22. IBUPROFEN [Suspect]
     Active Substance: IBUPROFEN
     Indication: Pustular psoriasis
  23. METHOTREXATE [Suspect]
     Active Substance: METHOTREXATE
     Indication: Psoriasis
     Dosage: UNK
     Route: 065
  24. METHOTREXATE [Suspect]
     Active Substance: METHOTREXATE
     Indication: Psoriatic arthropathy
  25. METHOTREXATE [Suspect]
     Active Substance: METHOTREXATE
     Indication: Pustular psoriasis

REACTIONS (19)
  - Skin lesion [Unknown]
  - Melanocytic naevus [Unknown]
  - Arthralgia [Unknown]
  - Erythema [Unknown]
  - Hyperkeratosis [Unknown]
  - Seborrhoeic keratosis [Unknown]
  - Papule [Unknown]
  - Pruritus [Unknown]
  - Dermatitis [Unknown]
  - Macule [Unknown]
  - Ephelides [Unknown]
  - Solar lentigo [Unknown]
  - Haemangioma of skin [Unknown]
  - Cyst [Unknown]
  - Actinic elastosis [Unknown]
  - Acrochordon [Unknown]
  - Scab [Unknown]
  - Product use in unapproved indication [Unknown]
  - Drug ineffective [Unknown]
